FAERS Safety Report 8036013-0 (Version None)
Quarter: 2012Q1

REPORT INFORMATION
  Report Type: 
  Country: None (occurrence: None)
  Receive Date: 20120111
  Receipt Date: 20120104
  Transmission Date: 20120608
  Serious: Yes (Other)
  Sender: FDA-Public Use
  Company Number: CN-PFIZER INC-2012003921

PATIENT
  Age: 78 Year
  Sex: Female

DRUGS (21)
  1. FUROSEMIDE [Concomitant]
     Dosage: UNK
     Dates: start: 20090216, end: 20090309
  2. POTASSIUM CHLORIDE [Concomitant]
     Dosage: UNK
     Dates: start: 20090216, end: 20090309
  3. METFORMIN [Concomitant]
     Dosage: 0.5 G, BID
     Route: 048
     Dates: start: 20090216, end: 20090305
  4. AMINO ACIDS [Concomitant]
     Dosage: UNK
     Route: 042
  5. METHYLPREDNISOLONE [Concomitant]
     Dosage: 40-80MG TID OR QID
     Dates: start: 20090302, end: 20090308
  6. LINEZOLID [Suspect]
     Indication: INFECTION
     Dosage: 0.6 G, Q12H
     Dates: start: 20090303, end: 20090310
  7. AMLODIPINE [Concomitant]
     Dosage: UNK
     Dates: start: 20090216, end: 20090309
  8. METHOXYPHENAMINE [Concomitant]
     Dosage: UNK
     Dates: start: 20090216, end: 20090309
  9. AMBROXOL [Concomitant]
     Dosage: UNK
     Dates: start: 20090216, end: 20090309
  10. FLUCONAZOLE [Concomitant]
     Dosage: 0.2 G, QD
     Dates: start: 20090224, end: 20090303
  11. CASPOFUNGIN ACETATE [Interacting]
     Indication: INFECTION
     Dosage: 70MG
     Dates: start: 20090304, end: 20090304
  12. SPIRONOLACTONE [Concomitant]
     Dosage: UNK
     Dates: start: 20090216, end: 20090309
  13. INDOMETHACIN [Concomitant]
     Dosage: INTERMITTENT USE
     Dates: start: 20090216, end: 20090309
  14. DIPROPHYLLINE [Concomitant]
     Route: 042
  15. AMBROXOL [Concomitant]
     Route: 042
  16. TORASEMIDE [Concomitant]
     Route: 042
  17. OMEPRAZOLE [Concomitant]
     Route: 042
  18. VANCOMYCIN [Concomitant]
     Dosage: 0.5 G, BID
     Dates: start: 20090217, end: 20090302
  19. CISPLATIN [Concomitant]
     Dosage: 0.5 G, TID
     Dates: start: 20090217, end: 20090223
  20. FOSFOMYCIN [Concomitant]
     Dosage: 4 G, BID
     Dates: start: 20090227, end: 20090303
  21. CASPOFUNGIN ACETATE [Interacting]
     Dosage: 50 MG, QD
     Dates: start: 20090305, end: 20090310

REACTIONS (3)
  - DRUG EFFECT DECREASED [None]
  - DRUG INTERACTION [None]
  - LIVER INJURY [None]
